FAERS Safety Report 15057630 (Version 1)
Quarter: 2018Q2

REPORT INFORMATION
  Report Type: Spontaneous
  Country: US (occurrence: US)
  Receive Date: 20180625
  Receipt Date: 20180625
  Transmission Date: 20180711
  Serious: Yes (Life-Threatening, Hospitalization, Other)
  Sender: FDA-Public Use
  Company Number: US-AMGEN-USASP2018082931

PATIENT
  Sex: Female

DRUGS (2)
  1. NPLATE [Suspect]
     Active Substance: ROMIPLOSTIM
     Indication: PRODUCT USED FOR UNKNOWN INDICATION
     Dosage: UNK
     Route: 065
  2. PREDNISONE. [Concomitant]
     Active Substance: PREDNISONE
     Dosage: UNK
     Dates: start: 2018

REACTIONS (6)
  - Unevaluable event [Unknown]
  - Pneumothorax [Unknown]
  - Platelet count decreased [Unknown]
  - Anaemia [Unknown]
  - Cardiac operation [Unknown]
  - Pleural effusion [Unknown]

NARRATIVE: CASE EVENT DATE: 2013
